FAERS Safety Report 6157667-X (Version None)
Quarter: 2009Q2

REPORT INFORMATION
  Report Type: 
  Country: None (occurrence: None)
  Receive Date: 20090414
  Receipt Date: 20090414
  Transmission Date: 20091009
  Serious: Yes (Life-Threatening, Other)
  Sender: FDA-Public Use
  Company Number: None

PATIENT
  Age: 55 Year
  Sex: Male
  Weight: 95.2554 kg

DRUGS (1)
  1. LARIAM [Suspect]
     Indication: MALARIA PROPHYLAXIS
     Dosage: 250 MG WEEKLY PO
     Route: 048
     Dates: start: 20051007, end: 20051028

REACTIONS (26)
  - ANHEDONIA [None]
  - ANXIETY [None]
  - ASTHENIA [None]
  - BALANCE DISORDER [None]
  - BRAIN INJURY [None]
  - BURNING SENSATION [None]
  - CONFUSIONAL STATE [None]
  - DISORIENTATION [None]
  - DIZZINESS [None]
  - DRUG TOXICITY [None]
  - EMOTIONAL DISORDER [None]
  - FATIGUE [None]
  - HAIR COLOUR CHANGES [None]
  - INSOMNIA [None]
  - JUDGEMENT IMPAIRED [None]
  - MENTAL DISORDER [None]
  - MUSCLE CONTRACTIONS INVOLUNTARY [None]
  - MUSCLE TWITCHING [None]
  - MYALGIA [None]
  - NERVOUS SYSTEM DISORDER [None]
  - NEURALGIA [None]
  - PARAESTHESIA [None]
  - SEXUAL DYSFUNCTION [None]
  - SLEEP APNOEA SYNDROME [None]
  - STRESS [None]
  - TINNITUS [None]
